FAERS Safety Report 6180341-0 (Version None)
Quarter: 2009Q2

REPORT INFORMATION
  Report Type: 
  Country: None (occurrence: None)
  Receive Date: 20090506
  Receipt Date: 20090428
  Transmission Date: 20091009
  Serious: Yes (Death, Hospitalization, Other)
  Sender: FDA-Public Use
  Company Number: US-CELGENEUS-163-21880-09041235

PATIENT
  Sex: Male
  Weight: 76.726 kg

DRUGS (1)
  1. REVLIMID [Suspect]
     Route: 048
     Dates: start: 20080917, end: 20090330

REACTIONS (6)
  - FEBRILE NEUTROPENIA [None]
  - HAEMOGLOBIN DECREASED [None]
  - MYELODYSPLASTIC SYNDROME [None]
  - PANCYTOPENIA [None]
  - PNEUMONIA [None]
  - RESPIRATORY FAILURE [None]
